FAERS Safety Report 4321942-1 (Version None)
Quarter: 2004Q1

REPORT INFORMATION
  Report Type: 
  Country: None (occurrence: None)
  Receive Date: 20040319
  Receipt Date: 20040305
  Transmission Date: 20041129
  Serious: Yes (Hospitalization)
  Sender: FDA-Public Use
  Company Number: 03P-163-0245753-00

PATIENT
  Age: 46 Year
  Sex: Male

DRUGS (2)
  1. NORVIR [Suspect]
     Indication: HIV INFECTION
     Dosage: PER ORAL
     Route: 048
  2. TIPRANAVIR [Concomitant]

REACTIONS (5)
  - BLOOD PRESSURE SYSTOLIC INCREASED [None]
  - CHRONIC OBSTRUCTIVE AIRWAYS DISEASE EXACERBATED [None]
  - HEART RATE INCREASED [None]
  - PYREXIA [None]
  - RESPIRATORY DISTRESS [None]
